FAERS Safety Report 14452914 (Version 1)
Quarter: 2018Q1

REPORT INFORMATION
  Report Type: Spontaneous
  Country: US (occurrence: US)
  Receive Date: 20180129
  Receipt Date: 20180129
  Transmission Date: 20180509
  Serious: No
  Sender: FDA-Public Use
  Company Number: US-TEVA-820087ACC

PATIENT
  Age: 74 Year
  Sex: Male

DRUGS (1)
  1. METOPROLOL XR [Suspect]
     Active Substance: METOPROLOL SUCCINATE
     Indication: BLOOD PRESSURE MEASUREMENT

REACTIONS (1)
  - Constipation [Unknown]
